FAERS Safety Report 16906015 (Version 1)
Quarter: 2019Q4

REPORT INFORMATION
  Report Type: Spontaneous
  Country: US (occurrence: US)
  Receive Date: 20191010
  Receipt Date: 20191010
  Transmission Date: 20200122
  Serious: No
  Sender: FDA-Public Use
  Company Number: US-AMGEN-USASP2019160984

PATIENT
  Age: 75 Year
  Sex: Female

DRUGS (1)
  1. PROLIA [Suspect]
     Active Substance: DENOSUMAB
     Indication: OSTEOPOROSIS POSTMENOPAUSAL
     Dosage: UNK
     Route: 065
     Dates: start: 20190920

REACTIONS (4)
  - Dental implantation [Unknown]
  - Tooth extraction [Unknown]
  - Blood urine present [Not Recovered/Not Resolved]
  - Dental prosthesis placement [Unknown]

NARRATIVE: CASE EVENT DATE: 20190921
